FAERS Safety Report 7673829-4 (Version None)
Quarter: 2011Q3

REPORT INFORMATION
  Report Type: 
  Country: None (occurrence: None)
  Receive Date: 20110808
  Receipt Date: 20110802
  Transmission Date: 20111222
  Serious: Yes (Other)
  Sender: FDA-Public Use
  Company Number: ACO_26146_2011

PATIENT
  Age: 61 Year
  Sex: Female
  Weight: 108.8 kg

DRUGS (5)
  1. AMPYRA [Suspect]
     Indication: MULTIPLE SCLEROSIS
     Dosage: 10 MG, BID, ORAL
     Route: 048
     Dates: start: 20100901
  2. CALCIUM (CALCIUM) [Concomitant]
  3. VITAMIN D NOS (VITAMIN D NOS) [Concomitant]
  4. TIZANIDINE HCL [Concomitant]
  5. BACLOFEN [Concomitant]

REACTIONS (2)
  - HALLUCINATION, AUDITORY [None]
  - HALLUCINATION, VISUAL [None]
